FAERS Safety Report 18687068 (Version 1)
Quarter: 2020Q4

REPORT INFORMATION
  Report Type: Report from Study
  Country: None (occurrence: US)
  Receive Date: 20201231
  Receipt Date: 20201231
  Transmission Date: 20210114
  Serious: Yes (Death, Hospitalization)
  Sender: FDA-Public Use
  Company Number: US-ABBVIE-20K-163-3460132-00

PATIENT
  Sex: Female

DRUGS (3)
  1. VENCLEXTA [Suspect]
     Active Substance: VENETOCLAX
     Indication: NEOPLASM MALIGNANT
     Dosage: DAY FOUR AND THEREAFTER
     Route: 048
  2. VENCLEXTA [Suspect]
     Active Substance: VENETOCLAX
     Indication: ACUTE MYELOID LEUKAEMIA
     Route: 048
     Dates: start: 201905
  3. VENCLEXTA [Suspect]
     Active Substance: VENETOCLAX
     Indication: AGRANULOCYTOSIS
     Dosage: DAY THREE
     Route: 048

REACTIONS (1)
  - Disease progression [Fatal]
